FAERS Safety Report 8382088-9 (Version None)
Quarter: 2012Q1

REPORT INFORMATION
  Report Type: 
  Country: None (occurrence: None)
  Receive Date: 20120323
  Receipt Date: 20110513
  Transmission Date: 20120608
  Serious: Yes (Hospitalization, Other)
  Sender: FDA-Public Use
  Company Number: 163-21880-11051760

PATIENT
  Age: 67 Year
  Sex: Male

DRUGS (1)
  1. REVLIMID [Suspect]
     Indication: MULTIPLE MYELOMA
     Dosage: 10 MG, DAILY FOR 14 DAYS, 1 WEEK OFF, PO
     Route: 048
     Dates: start: 20110401, end: 20110425

REACTIONS (3)
  - PNEUMONIA [None]
  - RASH MORBILLIFORM [None]
  - KIDNEY INFECTION [None]
